FAERS Safety Report 16814619 (Version 2)
Quarter: 2019Q3

REPORT INFORMATION
  Report Type: Report from Study
  Country: IT (occurrence: IT)
  Receive Date: 20190917
  Receipt Date: 20190925
  Transmission Date: 20191005
  Serious: Yes (Hospitalization)
  Sender: FDA-Public Use
  Company Number: IT-ROCHE-2400172

PATIENT
  Age: 49 Year
  Sex: Female
  Weight: 58 kg

DRUGS (5)
  1. EUTIROX [Concomitant]
     Active Substance: LEVOTHYROXINE SODIUM
     Route: 048
  2. COBIMETINIB. [Suspect]
     Active Substance: COBIMETINIB
     Indication: METASTATIC MALIGNANT MELANOMA
     Dosage: ON 01/SEP/2019  MOST RECENT DOSE OF COBIMETINIB WAS ADMINISTERED.
     Route: 048
     Dates: start: 20180222
  3. VEMURAFENIB. [Suspect]
     Active Substance: VEMURAFENIB
     Indication: METASTATIC MALIGNANT MELANOMA
     Dosage: ON 01/SEP/2019  MOST RECENT DOSE OF VEMURAFENIB WAS ADMINISTERED.
     Route: 048
     Dates: start: 20180222
  4. EUTIROX [Concomitant]
     Active Substance: LEVOTHYROXINE SODIUM
     Indication: HYPERTHYROIDISM
     Route: 048
     Dates: start: 20181018
  5. ATEZOLIZUMAB. [Suspect]
     Active Substance: ATEZOLIZUMAB
     Indication: METASTATIC MALIGNANT MELANOMA
     Dosage: ON 21/AUG/2019 MOST RECENT DOSE OF BLINDED ATEZOLIZUMAB 1200 MG/20ML WAS ADMINISTERED.
     Route: 042
     Dates: start: 20180514

REACTIONS (1)
  - Fracture displacement [Not Recovered/Not Resolved]

NARRATIVE: CASE EVENT DATE: 20190901
